FAERS Safety Report 6888022-2 (Version None)
Quarter: 2010Q3

REPORT INFORMATION
  Report Type: 
  Country: None (occurrence: None)
  Receive Date: 20100730
  Receipt Date: 20100727
  Transmission Date: 20110219
  Serious: Yes (Hospitalization)
  Sender: FDA-Public Use
  Company Number: B0661663A

PATIENT
  Sex: Female
  Weight: 47 kg

DRUGS (7)
  1. VALTREX [Suspect]
     Indication: HERPES ZOSTER
     Dosage: 3000MG PER DAY
     Route: 048
     Dates: start: 20100524, end: 20100525
  2. PONTAL [Suspect]
     Indication: HERPES ZOSTER
     Dosage: 1000MG PER DAY
     Route: 048
     Dates: start: 20100524, end: 20100525
  3. METHYCOOL [Concomitant]
     Indication: NEUROPATHY PERIPHERAL
     Dosage: 3IUAX PER DAY
     Route: 048
     Dates: start: 20100524, end: 20100525
  4. MUCOSTA [Concomitant]
     Indication: GASTRITIS
     Dosage: 3IUAX PER DAY
     Route: 048
     Dates: start: 20100524, end: 20100526
  5. CARTEOLOL HYDROCHLORIDE [Concomitant]
     Indication: GLAUCOMA
     Route: 031
  6. KARY UNI [Concomitant]
     Indication: GLAUCOMA
     Route: 031
  7. GATIFLOXACIN [Concomitant]
     Indication: GLAUCOMA
     Route: 031

REACTIONS (18)
  - ALANINE AMINOTRANSFERASE INCREASED [None]
  - ASPARTATE AMINOTRANSFERASE INCREASED [None]
  - BLOOD CREATININE INCREASED [None]
  - BLOOD UREA INCREASED [None]
  - C-REACTIVE PROTEIN INCREASED [None]
  - EOSINOPHIL PERCENTAGE INCREASED [None]
  - GLOMERULAR FILTRATION RATE DECREASED [None]
  - HEPATITIS [None]
  - HEPATITIS ACUTE [None]
  - LIVER DISORDER [None]
  - LYMPHOCYTE PERCENTAGE DECREASED [None]
  - MALAISE [None]
  - MONOCYTE PERCENTAGE DECREASED [None]
  - NEUTROPHIL PERCENTAGE INCREASED [None]
  - RENAL DISORDER [None]
  - RENAL FAILURE ACUTE [None]
  - VOMITING [None]
  - WHITE BLOOD CELL COUNT INCREASED [None]
